FAERS Safety Report 4974709-5 (Version None)
Quarter: 2006Q2

REPORT INFORMATION
  Report Type: 
  Country: None (occurrence: None)
  Receive Date: 20060417
  Receipt Date: 20050913
  Transmission Date: 20061013
  Serious: Yes (Hospitalization)
  Sender: FDA-Public Use
  Company Number: US-MERCK-0509USA01812

PATIENT
  Age: 65 Year
  Sex: Female
  Weight: 101 kg

DRUGS (10)
  1. VIOXX [Suspect]
     Route: 048
  2. NORVASC [Concomitant]
     Route: 065
  3. ECOTRIN [Concomitant]
     Route: 065
  4. LASIX [Concomitant]
     Route: 065
  5. NEURONTIN [Concomitant]
     Route: 065
  6. NEURONTIN [Concomitant]
     Route: 065
  7. K-DUR 10 [Concomitant]
     Route: 065
  8. TOPROL-XL [Concomitant]
     Route: 065
  9. ZOCOR [Concomitant]
     Route: 048
  10. NORTRIPTYLINE [Concomitant]
     Route: 065

REACTIONS (16)
  - ANXIETY [None]
  - ASTHENIA [None]
  - CAROTID ARTERY STENOSIS [None]
  - CEREBROVASCULAR ACCIDENT [None]
  - DEHYDRATION [None]
  - DEPRESSION [None]
  - DIABETES MELLITUS NON-INSULIN-DEPENDENT [None]
  - GASTROENTERITIS VIRAL [None]
  - HYPERHIDROSIS [None]
  - INTERMITTENT CLAUDICATION [None]
  - LUMBAR SPINAL STENOSIS [None]
  - NEPHROLITHIASIS [None]
  - PAIN IN EXTREMITY [None]
  - PULMONARY OEDEMA [None]
  - RADICULOPATHY [None]
  - SUBCLAVIAN STEAL SYNDROME [None]
